FAERS Safety Report 9626871 (Version 2)
Quarter: 2013Q4

REPORT INFORMATION
  Report Type: Spontaneous
  Country: US (occurrence: None)
  Receive Date: 20131011
  Receipt Date: 20131024
  Transmission Date: 20140711
  Serious: Yes (Congenital Anomaly)
  Sender: FDA-Public Use
  Company Number: ADR-2013UNK163

PATIENT
  Sex: 0

DRUGS (4)
  1. ZIDOVUDINE [Suspect]
     Dosage: 1 COURSE
  2. DARUNAVIR (PREZISTA) [Concomitant]
  3. RITONAVIR (NORVIR) [Concomitant]
  4. TENOFOVIR DISOPROXIL FUMARATE (VIREAD) [Concomitant]

REACTIONS (2)
  - Congenital foot malformation [None]
  - Maternal drugs affecting foetus [None]
